FAERS Safety Report 7478923-9 (Version None)
Quarter: 2011Q2

REPORT INFORMATION
  Report Type: 
  Country: None (occurrence: None)
  Receive Date: 20110511
  Receipt Date: 20110511
  Transmission Date: 20111010
  Serious: No
  Sender: FDA-Public Use
  Company Number: None

PATIENT
  Age: 59 Year
  Sex: Female
  Weight: 65.7716 kg

DRUGS (2)
  1. INDOMETHACIN EXTENDED RELEASE [Suspect]
     Indication: SACROILIITIS
     Dosage: 75 MG CAPSULES TWICE DAILY PO
     Route: 048
     Dates: start: 20110404, end: 20110420
  2. INDOMETHACIN EXTENDED RELEASE [Suspect]
     Indication: OSTEITIS
     Dosage: 75 MG CAPSULES TWICE DAILY PO
     Route: 048
     Dates: start: 20110404, end: 20110420

REACTIONS (7)
  - ALOPECIA [None]
  - PAIN [None]
  - GAIT DISTURBANCE [None]
  - JOINT SWELLING [None]
  - PRODUCT SUBSTITUTION ISSUE [None]
  - DRUG INEFFECTIVE [None]
  - MUSCULOSKELETAL STIFFNESS [None]
